FAERS Safety Report 9457607 (Version 1)
Quarter: 2013Q3

REPORT INFORMATION
  Report Type: Spontaneous
  Country: US (occurrence: US)
  Receive Date: 20130814
  Receipt Date: 20130814
  Transmission Date: 20140515
  Serious: No
  Sender: FDA-Public Use
  Company Number: US-PFIZER INC-2013233116

PATIENT
  Age: 59 Year
  Sex: Female
  Weight: 70.3 kg

DRUGS (4)
  1. CORTEF [Suspect]
     Indication: ADRENAL INSUFFICIENCY
     Dosage: BY SPLITTING 10 MG TABLET INTO HALF AT 3-4 TIMES A DAY
     Route: 048
     Dates: start: 20130708
  2. CORTEF [Suspect]
     Dosage: 5 MG, 2X/DAY
     Route: 048
     Dates: start: 20130808
  3. VITAMIN D [Concomitant]
     Dosage: UNK
  4. CALCIUM [Concomitant]
     Dosage: UNK

REACTIONS (1)
  - Malaise [Recovered/Resolved]
